FAERS Safety Report 16628154 (Version 1)
Quarter: 2019Q3

REPORT INFORMATION
  Report Type: Spontaneous
  Country: US (occurrence: US)
  Receive Date: 20190724
  Receipt Date: 20190724
  Transmission Date: 20191004
  Serious: No
  Sender: FDA-Public Use
  Company Number: US-IGSA-SR10007383

PATIENT
  Sex: Male

DRUGS (2)
  1. FLEBOGAMMA DIF [Suspect]
     Active Substance: HUMAN IMMUNOGLOBULIN G
     Indication: PAEDIATRIC AUTOIMMUNE NEUROPSYCHIATRIC DISORDERS ASSOCIATED WITH STREPTOCOCCAL INFECTION
     Dosage: 20 G, QD
     Route: 042
  2. CORTICOSTEROIDS [Concomitant]
     Active Substance: CORTICOSTEROID NOS

REACTIONS (11)
  - Catatonia [Recovering/Resolving]
  - Inflammatory marker increased [Recovering/Resolving]
  - Mononucleosis syndrome [Recovering/Resolving]
  - Laryngitis [Recovered/Resolved]
  - Skin discolouration [Recovering/Resolving]
  - Abdominal discomfort [Recovering/Resolving]
  - Pharyngeal swelling [Recovered/Resolved]
  - Vocal cord disorder [Recovered/Resolved]
  - Blood pressure increased [Recovering/Resolving]
  - Headache [Recovering/Resolving]
  - Mydriasis [Recovering/Resolving]
